FAERS Safety Report 8966918 (Version 2)
Quarter: 2013Q1

REPORT INFORMATION
  Report Type: Spontaneous
  Country: BR (occurrence: BR)
  Receive Date: 20121217
  Receipt Date: 20130118
  Transmission Date: 20140127
  Serious: Yes (Death, Life-Threatening, Hospitalization, Other)
  Sender: FDA-Public Use
  Company Number: PHHY2012BR115615

PATIENT
  Age: 82 Year
  Sex: Female
  Weight: 89 kg

DRUGS (11)
  1. DIOVAN HCT [Suspect]
     Dosage: 1 DF (160MG VALS/12.5MG HCT), DAILY
     Route: 048
  2. SIMVASTATIN [Suspect]
     Dosage: 1 DF, BID
  3. CITALOR [Suspect]
     Dosage: 1 DF, BID
  4. CARVEDILOL [Concomitant]
     Indication: CARDIAC DISORDER
     Dosage: 2 DF, DAILY
     Route: 048
  5. OMEPRAZOLE [Concomitant]
     Indication: GASTROINTESTINAL DISORDER
     Dosage: 1 DF, DAILY
     Route: 048
  6. ANCORON [Concomitant]
     Indication: CARDIAC DISORDER
     Dosage: 1 DF, DAILY
     Route: 048
  7. SOMALGIN [Concomitant]
     Indication: ANTICOAGULANT THERAPY
     Dosage: 1 DF, DAILY
     Route: 048
  8. METFORMIN [Concomitant]
     Dosage: 2 DF, DAILY
     Route: 048
  9. PURAN T4 [Concomitant]
     Dosage: 1 DF, DAILY
     Route: 048
  10. RIVOTRIL [Concomitant]
     Indication: SLEEP DISORDER
     Dosage: 1 DF, DAILY
     Route: 048
  11. CILOSTAZOL [Concomitant]
     Indication: VARICOSE VEIN
     Dosage: 2 DF, DAILY
     Route: 048

REACTIONS (11)
  - Diabetic ketoacidosis [Fatal]
  - Cerebrovascular accident [Fatal]
  - Convulsion [Fatal]
  - Speech disorder [Fatal]
  - Tremor [Fatal]
  - Nervousness [Fatal]
  - Hyperglycaemia [Fatal]
  - Cardiac arrest [Unknown]
  - Fall [Unknown]
  - Pallor [Unknown]
  - Blood pressure increased [Unknown]
